FAERS Safety Report 5466229-9 (Version None)
Quarter: 2007Q3

REPORT INFORMATION
  Report Type: 
  Country: None (occurrence: None)
  Receive Date: 20070924
  Receipt Date: 20070912
  Transmission Date: 20080115
  Serious: Yes (Hospitalization, Other)
  Sender: FDA-Public Use
  Company Number: US-PFIZER INC-2007076866

PATIENT
  Sex: Female

DRUGS (2)
  1. CHANTIX [Suspect]
  2. ALBUTEROL [Suspect]

REACTIONS (3)
  - CARDIAC DISORDER [None]
  - HYPERSENSITIVITY [None]
  - KIDNEY INFECTION [None]
